APPROVED DRUG PRODUCT: FELBAMATE
Active Ingredient: FELBAMATE
Strength: 400MG
Dosage Form/Route: TABLET;ORAL
Application: A207093 | Product #001 | TE Code: AB
Applicant: TARO PHARMACEUTICAL INDUSTRIES LTD
Approved: Apr 20, 2017 | RLD: No | RS: No | Type: RX